FAERS Safety Report 25145993 (Version 1)
Quarter: 2025Q2

REPORT INFORMATION
  Report Type: Other
  Country: US (occurrence: US)
  Receive Date: 20250401
  Receipt Date: 20250401
  Transmission Date: 20250716
  Serious: Yes (Other)
  Sender: CHEMI SPA
  Company Number: US-CHEMI SPA-2174059

PATIENT
  Age: 3 Year
  Sex: Male

DRUGS (4)
  1. TEMOZOLOMIDE [Suspect]
     Active Substance: TEMOZOLOMIDE
     Indication: Medulloblastoma recurrent
  2. IRINOTECAN HYDROCHLORIDE [Suspect]
     Active Substance: IRINOTECAN HYDROCHLORIDE
  3. ETOPOSIDE [Suspect]
     Active Substance: ETOPOSIDE
  4. CYCLOPHOSPHAMIDE [Suspect]
     Active Substance: CYCLOPHOSPHAMIDE

REACTIONS (4)
  - Myelosuppression [Unknown]
  - Off label use [Unknown]
  - Seizure [Unknown]
  - Hyponatraemia [Unknown]
